FAERS Safety Report 5097031-8 (Version None)
Quarter: 2006Q3

REPORT INFORMATION
  Report Type: 
  Country: None (occurrence: None)
  Receive Date: 20060906
  Receipt Date: 20060830
  Transmission Date: 20061208
  Serious: Yes (Other)
  Sender: FDA-Public Use
  Company Number: US-JNJFOC-20060605936

PATIENT
  Sex: Female
  Weight: 50.4 kg

DRUGS (9)
  1. REMICADE [Suspect]
     Route: 042
  2. REMICADE [Suspect]
     Route: 042
  3. REMICADE [Suspect]
     Route: 042
  4. REMICADE [Suspect]
     Indication: CROHN'S DISEASE
     Route: 042
  5. ULTRAM [Concomitant]
     Indication: PAIN
  6. IMODIUM [Concomitant]
     Indication: DIARRHOEA
  7. PRENATAL VITAMINS [Concomitant]
     Indication: PREGNANCY
     Route: 048
  8. VICODIN [Concomitant]
     Indication: PAIN
     Dosage: DOSE 5/500 AS NEEDED
     Route: 048
  9. AMBIEN [Concomitant]
     Indication: INSOMNIA
     Route: 048

REACTIONS (2)
  - DRUG EXPOSURE DURING PREGNANCY [None]
  - INTRA-UTERINE DEATH [None]
